FAERS Safety Report 6613807-7 (Version None)
Quarter: 2010Q1

REPORT INFORMATION
  Report Type: 
  Country: None (occurrence: None)
  Receive Date: 20100225
  Receipt Date: 20100215
  Transmission Date: 20100710
  Serious: Yes (Death, Hospitalization)
  Sender: FDA-Public Use
  Company Number: 006616

PATIENT
  Sex: Female

DRUGS (6)
  1. KEPPRA [Suspect]
     Dosage: (500 MG ORAL)
     Route: 048
     Dates: start: 20091201, end: 20100105
  2. TEMODAL [Suspect]
     Indication: GLIOBLASTOMA
     Dosage: (100 MG ORAL)
     Route: 048
     Dates: start: 20091201, end: 20100105
  3. BACTRIM [Suspect]
     Dosage: (160 MG + 800 MG)
     Dates: start: 20091201, end: 20100105
  4. HUMULIN /01040301/ [Concomitant]
  5. NAPRILENE [Concomitant]
  6. MEPRAL /00661201/ [Concomitant]

REACTIONS (8)
  - AREFLEXIA [None]
  - COMA [None]
  - EPISTAXIS [None]
  - GENERAL PHYSICAL HEALTH DETERIORATION [None]
  - HAEMATOMA [None]
  - MIOSIS [None]
  - PANCYTOPENIA [None]
  - PETECHIAE [None]
